FAERS Safety Report 5735826-5 (Version None)
Quarter: 2008Q2

REPORT INFORMATION
  Report Type: 
  Country: None (occurrence: None)
  Receive Date: 20080508
  Receipt Date: 20080508
  Transmission Date: 20081010
  Serious: Yes (Other)
  Sender: FDA-Public Use
  Company Number: None

PATIENT
  Age: 34 Year
  Sex: Female
  Weight: 108.8633 kg

DRUGS (2)
  1. CREST PRO HEALTH MOUTHWASH [Suspect]
     Dates: start: 20080315, end: 20080315
  2. CREST PRO HEALTH TOOTHPASTE [Suspect]

REACTIONS (5)
  - DISCOMFORT [None]
  - ILL-DEFINED DISORDER [None]
  - ORAL DISCOMFORT [None]
  - ORAL PAIN [None]
  - PHARMACEUTICAL PRODUCT COMPLAINT [None]
